FAERS Safety Report 24681594 (Version 1)
Quarter: 2024Q4

REPORT INFORMATION
  Report Type: Spontaneous
  Country: JP (occurrence: JP)
  Receive Date: 20241130
  Receipt Date: 20241130
  Transmission Date: 20250114
  Serious: Yes (Other)
  Sender: ALEXION PHARMACEUTICALS
  Company Number: JP-ASTRAZENECA-240133591_013120_P_1

PATIENT

DRUGS (4)
  1. DURVALUMAB [Suspect]
     Active Substance: DURVALUMAB
     Indication: Non-small cell lung cancer
     Dosage: 10 MILLIGRAM/KILOGRAM, Q2W
  2. DURVALUMAB [Suspect]
     Active Substance: DURVALUMAB
     Dosage: 10 MILLIGRAM/KILOGRAM, Q2W
  3. DURVALUMAB [Suspect]
     Active Substance: DURVALUMAB
     Dosage: 10 MILLIGRAM/KILOGRAM, Q2W
  4. DURVALUMAB [Suspect]
     Active Substance: DURVALUMAB
     Dosage: 10 MILLIGRAM/KILOGRAM, Q2W

REACTIONS (1)
  - Neuropathy peripheral [Recovered/Resolved]
